FAERS Safety Report 7607560-8 (Version None)
Quarter: 2011Q3

REPORT INFORMATION
  Report Type: 
  Country: None (occurrence: None)
  Receive Date: 20110713
  Receipt Date: 20110629
  Transmission Date: 20111222
  Serious: No
  Sender: FDA-Public Use
  Company Number: US-BAYER-2011-022912

PATIENT
  Age: 29 Year
  Sex: Male
  Weight: 70.4 kg

DRUGS (2)
  1. ANTIHEMOPHILIC FACTOR NOS [Suspect]
     Dosage: 1775 U, TIW
     Route: 042
     Dates: start: 20090222
  2. ANTIHEMOPHILIC FACTOR NOS [Suspect]
     Indication: FACTOR VIII DEFICIENCY
     Dosage: 1800 IU, TIW
     Route: 042
     Dates: start: 20090217

REACTIONS (1)
  - NO ADVERSE EVENT [None]
